FAERS Safety Report 16007098 (Version 6)
Quarter: 2021Q2

REPORT INFORMATION
  Report Type: Report from Study
  Country: FR (occurrence: FR)
  Receive Date: 20190226
  Receipt Date: 20210429
  Transmission Date: 20210716
  Serious: Yes (Hospitalization, Other)
  Sender: FDA-Public Use
  Company Number: PHHY2019FR043673

PATIENT
  Sex: Male
  Weight: 100 kg

DRUGS (2)
  1. VOTRIENT [Suspect]
     Active Substance: PAZOPANIB HYDROCHLORIDE
     Indication: RENAL CANCER METASTATIC
     Dosage: 800 MG, QD
     Route: 048
     Dates: start: 20180423
  2. VOTRIENT [Suspect]
     Active Substance: PAZOPANIB HYDROCHLORIDE
     Dosage: 400 MG, QD
     Route: 048
     Dates: start: 20190115, end: 20190228

REACTIONS (7)
  - Syncope [Recovered/Resolved]
  - Hyperkalaemia [Recovered/Resolved]
  - Presyncope [Recovered/Resolved]
  - Nodule [Not Recovered/Not Resolved]
  - Leukopenia [Recovered/Resolved]
  - Malaise [Recovered/Resolved]
  - Sciatica [Recovered/Resolved]

NARRATIVE: CASE EVENT DATE: 20181109
